FAERS Safety Report 5559235-7 (Version None)
Quarter: 2007Q4

REPORT INFORMATION
  Report Type: 
  Country: None (occurrence: None)
  Receive Date: 20071214
  Receipt Date: 20070921
  Transmission Date: 20080405
  Serious: No
  Sender: FDA-Public Use
  Company Number: US-ABBOTT-07P-163-0418335-00

PATIENT
  Sex: Female
  Weight: 86.26 kg

DRUGS (18)
  1. HUMIRA [Suspect]
     Indication: CROHN'S DISEASE
     Route: 058
     Dates: start: 20070919
  2. SUMATRIPTAN SUCCINATE [Concomitant]
     Indication: DRUG USE FOR UNKNOWN INDICATION
  3. TRIHEXYPHENIDYL HCL [Concomitant]
     Indication: PARKINSON'S DISEASE
     Route: 048
  4. LANSOPRAZOLE [Concomitant]
     Indication: DRUG USE FOR UNKNOWN INDICATION
     Route: 048
  5. MAXIDE/TRIAMTERENE [Concomitant]
     Indication: DRUG USE FOR UNKNOWN INDICATION
     Dosage: 25/37.5 MG DAILY
     Route: 048
  6. SINEMET [Concomitant]
     Indication: PARKINSON'S DISEASE
     Dosage: 10/100 MG
  7. FENOFIBRATE [Concomitant]
     Indication: BLOOD CHOLESTEROL
  8. MESALAMINE [Concomitant]
     Indication: CROHN'S DISEASE
  9. TIAGABINE HYDROCHLORIDE [Concomitant]
     Indication: BIPOLAR DISORDER
  10. GABAPENTIN [Concomitant]
     Indication: PAIN MANAGEMENT
  11. GABAPENTIN [Concomitant]
     Indication: BIPOLAR DISORDER
  12. VENLAFAXIINE HCL [Concomitant]
     Indication: BIPOLAR DISORDER
  13. ARIPIPRAZOLE [Concomitant]
     Indication: BIPOLAR DISORDER
  14. CLONOPIN [Concomitant]
     Indication: ANXIETY
  15. MORPHINE [Concomitant]
     Indication: PAIN
  16. FLUTICASONE PROPIONATE [Concomitant]
     Indication: HYPERSENSITIVITY
     Dosage: 0.5, 2 SPRAYS DAILY
     Route: 045
  17. VICODIN [Concomitant]
     Indication: DRUG USE FOR UNKNOWN INDICATION
     Dosage: 5/500 MG FOUR PILLS DAILY
  18. ROPINIROLE HCL [Concomitant]
     Indication: PARKINSON'S DISEASE

REACTIONS (1)
  - CHEST PAIN [None]
